FAERS Safety Report 10334165 (Version 1)
Quarter: 2014Q3

REPORT INFORMATION
  Report Type: Spontaneous
  Country: JP (occurrence: JP)
  Receive Date: 20140723
  Receipt Date: 20140723
  Transmission Date: 20150326
  Serious: Yes (Other)
  Sender: FDA-Public Use
  Company Number: JP-TEVA-495348ISR

PATIENT
  Age: 84 Year
  Sex: Male

DRUGS (4)
  1. METHYLPREDNISOLONE [Suspect]
     Active Substance: METHYLPREDNISOLONE
     Indication: STILL^S DISEASE ADULT ONSET
     Dosage: 125 MILLIGRAM DAILY;
     Route: 065
     Dates: start: 201108
  2. PREDNISOLONE. [Suspect]
     Active Substance: PREDNISOLONE
     Dosage: 15 MILLIGRAM DAILY;
     Route: 065
     Dates: start: 201107
  3. PREDNISOLONE. [Suspect]
     Active Substance: PREDNISOLONE
     Indication: STILL^S DISEASE ADULT ONSET
     Dosage: 20 MILLIGRAM DAILY; 20 MG/DAY AS A SHORT COURSE
     Route: 065
     Dates: start: 201105
  4. PREDNISOLONE. [Suspect]
     Active Substance: PREDNISOLONE
     Dosage: 30 MILLIGRAM DAILY;
     Route: 065
     Dates: start: 201107

REACTIONS (3)
  - Myopathy [Recovered/Resolved]
  - Diabetes mellitus [Recovering/Resolving]
  - Hypogammaglobulinaemia [Recovered/Resolved]
